FAERS Safety Report 4913087-4 (Version None)
Quarter: 2006Q1

REPORT INFORMATION
  Report Type: 
  Country: None (occurrence: None)
  Receive Date: 20060210
  Receipt Date: 20060127
  Transmission Date: 20060701
  Serious: Yes (Death)
  Sender: FDA-Public Use
  Company Number: L05-USA-03935-05

PATIENT
  Age: 62 Year
  Sex: Male

DRUGS (2)
  1. CITALOPRAM [Suspect]
  2. AMITRIPTYLINE HCL [Suspect]

REACTIONS (5)
  - CARDIAC ARREST [None]
  - COMPLETED SUICIDE [None]
  - DRUG SCREEN POSITIVE [None]
  - PULMONARY OEDEMA [None]
  - RESPIRATORY ARREST [None]
